FAERS Safety Report 24631802 (Version 2)
Quarter: 2024Q4

REPORT INFORMATION
  Report Type: Spontaneous
  Country: TR (occurrence: TR)
  Receive Date: 20241118
  Receipt Date: 20241126
  Transmission Date: 20250115
  Serious: Yes (Hospitalization, Other)
  Sender: SANOFI AVENTIS
  Company Number: TR-MLMSERVICE-20241106-PI250578-00232-1

PATIENT
  Age: 9 Year
  Sex: Male

DRUGS (14)
  1. FLUDARABINE PHOSPHATE [Suspect]
     Active Substance: FLUDARABINE PHOSPHATE
     Indication: Bone marrow conditioning regimen
     Dosage: 175 MG/M2/KG
  2. ANTI-THYMOCYTE GLOBULIN (RABBIT) NOS [Suspect]
     Active Substance: LAPINE T-LYMPHOCYTE IMMUNE GLOBULIN
     Indication: Bone marrow conditioning regimen
     Dosage: 30 MG/KG
  3. CYCLOPHOSPHAMIDE [Suspect]
     Active Substance: CYCLOPHOSPHAMIDE
     Indication: Bone marrow conditioning regimen
     Dosage: 20 MG/KG
  4. METHYLPREDNISOLONE [Suspect]
     Active Substance: METHYLPREDNISOLONE
     Indication: Engraftment syndrome
     Dosage: 1 MG/KG, ON DAY 16
  5. METHYLPREDNISOLONE [Suspect]
     Active Substance: METHYLPREDNISOLONE
     Dosage: 2 MG/KG, ON DAY +26
  6. CYCLOSPORINE [Suspect]
     Active Substance: CYCLOSPORINE
     Indication: Prophylaxis against graft versus host disease
     Dosage: UNK
  7. METHOTREXATE [Suspect]
     Active Substance: METHOTREXATE
     Indication: Prophylaxis against graft versus host disease
     Dosage: UNK
  8. MYCOPHENOLATE MOFETIL [Suspect]
     Active Substance: MYCOPHENOLATE MOFETIL
     Dosage: UNK
  9. MEROPENEM [Concomitant]
     Active Substance: MEROPENEM
     Dosage: DAY -4
  10. TEICOPLANIN [Concomitant]
     Active Substance: TEICOPLANIN
     Dosage: DAY +4
  11. ENALAPRIL [Concomitant]
     Active Substance: ENALAPRIL
     Indication: Engraftment syndrome
     Dosage: UNK
  12. AMPHOTERICIN B [Concomitant]
     Active Substance: AMPHOTERICIN B
     Dosage: DAY +9
  13. CIPROFLOXACIN [Concomitant]
     Active Substance: CIPROFLOXACIN
     Dosage: DAY +13
  14. CLARITHROMYCIN [Concomitant]
     Active Substance: CLARITHROMYCIN
     Dosage: DAY +16

REACTIONS (3)
  - Posterior reversible encephalopathy syndrome [Recovered/Resolved]
  - Seizure [Recovered/Resolved]
  - Adenovirus reactivation [Recovered/Resolved]
